FAERS Safety Report 7993665 (Version 3)
Quarter: 2013Q1

REPORT INFORMATION
  Report Type: Spontaneous
  Country: JP (occurrence: JP)
  Receive Date: 20110616
  Receipt Date: 20130115
  Transmission Date: 20140127
  Serious: Yes (Life-Threatening, Other)
  Sender: FDA-Public Use
  Company Number: JP-PFIZER INC-2011129004

PATIENT
  Sex: Female
  Weight: 3.07 kg

DRUGS (3)
  1. UNASYN-S [Suspect]
     Indication: INFECTION PROPHYLAXIS
     Dosage: 1.5 MG, 1X/DAY
     Route: 064
     Dates: start: 20110611, end: 20110611
  2. KEFRAL [Concomitant]
     Indication: PREMATURE RUPTURE OF MEMBRANES
     Dosage: 250 MG, 1X/DAY
     Route: 064
     Dates: start: 20110611, end: 20110611
  3. PROSTAGLANDIN F2 ALPHA [Concomitant]
     Indication: LABOUR INDUCTION
     Dosage: 3 MG, 1X/DAY
     Route: 064
     Dates: start: 20110611, end: 20110611

REACTIONS (2)
  - Exposure during pregnancy [Unknown]
  - Neonatal asphyxia [Recovered/Resolved]
